FAERS Safety Report 5456309-6 (Version None)
Quarter: 2007Q3

REPORT INFORMATION
  Report Type: 
  Country: None (occurrence: None)
  Receive Date: 20070918
  Receipt Date: 20070914
  Transmission Date: 20080115
  Serious: Yes (Hospitalization, Other)
  Sender: FDA-Public Use
  Company Number: JP-MERCK-0707USA03643

PATIENT
  Age: 8 Year
  Sex: Male
  Weight: 31 kg

DRUGS (5)
  1. COZAAR [Suspect]
     Indication: GLOMERULONEPHRITIS CHRONIC
     Route: 048
     Dates: start: 20070416, end: 20070717
  2. ENALAPRIL MALEATE [Suspect]
     Indication: GLOMERULONEPHRITIS CHRONIC
     Route: 048
     Dates: start: 20070326, end: 20070717
  3. COMELIAN [Concomitant]
     Indication: GLOMERULONEPHRITIS CHRONIC
     Route: 048
     Dates: start: 20070314, end: 20070714
  4. ADONA [Concomitant]
     Indication: GLOMERULONEPHRITIS CHRONIC
     Route: 048
     Dates: start: 20070311
  5. CINAL [Concomitant]
     Indication: GLOMERULONEPHRITIS CHRONIC
     Route: 048
     Dates: start: 20070311

REACTIONS (6)
  - BETA 2 MICROGLOBULIN URINE INCREASED [None]
  - BLOOD CREATININE INCREASED [None]
  - BLOOD UREA INCREASED [None]
  - GLUCOSE URINE PRESENT [None]
  - NEPHRITIS INTERSTITIAL [None]
  - OVERDOSE [None]
